FAERS Safety Report 6429821-0 (Version None)
Quarter: 2009Q4

REPORT INFORMATION
  Report Type: 
  Country: None (occurrence: None)
  Receive Date: 20091106
  Receipt Date: 20091027
  Transmission Date: 20100525
  Serious: Yes (Hospitalization)
  Sender: FDA-Public Use
  Company Number: US-JNJFOC-20091100656

PATIENT
  Age: 6 Month
  Sex: Male
  Weight: 12.25 kg

DRUGS (6)
  1. TYLENOL (CAPLET) [Suspect]
     Route: 048
  2. TYLENOL (CAPLET) [Suspect]
     Indication: PYREXIA
     Route: 048
  3. ANTIBIOTICS [Concomitant]
     Indication: EAR INFECTION
  4. PULMICORT [Concomitant]
     Indication: RESPIRATORY DISORDER
  5. XOPENEX [Concomitant]
     Indication: RESPIRATORY DISORDER
  6. FORADIL [Concomitant]
     Indication: RESPIRATORY DISORDER

REACTIONS (2)
  - OXYGEN SATURATION DECREASED [None]
  - TRANSMISSION OF AN INFECTIOUS AGENT VIA A MEDICINAL PRODUCT [None]
